FAERS Safety Report 6707381-4 (Version None)
Quarter: 2010Q2

REPORT INFORMATION
  Report Type: 
  Country: None (occurrence: None)
  Receive Date: 20100429
  Receipt Date: 20100422
  Transmission Date: 20101027
  Serious: Yes (Hospitalization, Other)
  Sender: FDA-Public Use
  Company Number: 2010SP000379

PATIENT
  Age: 37 Year
  Sex: Female
  Weight: 78 kg

DRUGS (2)
  1. IMPLANON [Suspect]
     Indication: CONTRACEPTION
     Dosage: 1 DF;SC ;1 DF;SC
     Route: 058
     Dates: start: 20050101
  2. IMPLANON [Suspect]
     Indication: CONTRACEPTION
     Dosage: 1 DF;SC ;1 DF;SC
     Route: 058
     Dates: start: 20081108

REACTIONS (4)
  - AMENORRHOEA [None]
  - HYPOAESTHESIA [None]
  - MULTIPLE SCLEROSIS RELAPSE [None]
  - VAGINAL HAEMORRHAGE [None]
